FAERS Safety Report 15725990 (Version 1)
Quarter: 2018Q4

REPORT INFORMATION
  Report Type: Spontaneous
  Country: US (occurrence: US)
  Receive Date: 20181216
  Receipt Date: 20181216
  Transmission Date: 20190205
  Serious: No
  Sender: FDA-Public Use
  Company Number: US-SUPERNUS PHARMACEUTICALS, INC.-2018SUP00050

PATIENT
  Sex: Male
  Weight: 113.38 kg

DRUGS (3)
  1. TROKENDI XR [Suspect]
     Active Substance: TOPIRAMATE
     Dosage: 75 MG, 1X/DAY
     Route: 048
     Dates: start: 20180218, end: 2018
  2. TROKENDI XR [Suspect]
     Active Substance: TOPIRAMATE
     Indication: HEADACHE
     Dosage: 25 MG, 1X/DAY
     Route: 048
     Dates: start: 20180117, end: 201801
  3. TROKENDI XR [Suspect]
     Active Substance: TOPIRAMATE
     Indication: NECK PAIN
     Dosage: 45 MG, 1X/DAY
     Route: 048
     Dates: start: 201801, end: 20180217

REACTIONS (4)
  - Depression [Recovering/Resolving]
  - Anxiety [Recovered/Resolved]
  - Memory impairment [Recovering/Resolving]
  - Amnesia [Recovering/Resolving]

NARRATIVE: CASE EVENT DATE: 2018
